FAERS Safety Report 6284910-9 (Version None)
Quarter: 2009Q3

REPORT INFORMATION
  Report Type: 
  Country: None (occurrence: None)
  Receive Date: 20090727
  Receipt Date: 20090720
  Transmission Date: 20100115
  Serious: Yes (Other)
  Sender: FDA-Public Use
  Company Number: US-ROXANE LABORATORIES, INC.-2009-RO-00728RO

PATIENT
  Age: 36 Year
  Sex: Female

DRUGS (9)
  1. MYCOPHENOLATE MOFETIL [Suspect]
     Indication: PROPHYLAXIS AGAINST TRANSPLANT REJECTION
     Dosage: 500 MG
     Route: 048
  2. PREDNISONE TAB [Suspect]
     Indication: PROPHYLAXIS AGAINST TRANSPLANT REJECTION
     Dosage: 5 MG
     Route: 048
  3. TACROLIMUS [Suspect]
     Indication: PROPHYLAXIS AGAINST TRANSPLANT REJECTION
     Dosage: 5 MG
     Route: 048
  4. NORVASC [Suspect]
     Indication: HYPERTENSION
  5. METOPROLOL SUCCINATE [Suspect]
     Indication: HYPERTENSION
  6. LASIX [Suspect]
     Indication: HYPERTENSION
  7. EPOGEN [Suspect]
  8. VITAMIN TAB [Suspect]
  9. ACYCLOVIR [Suspect]
     Indication: HERPES ZOSTER

REACTIONS (5)
  - BLOOD CREATININE INCREASED [None]
  - HERPES ZOSTER [None]
  - HYDRONEPHROSIS [None]
  - POLYHYDRAMNIOS [None]
  - RENAL TUBULAR DISORDER [None]
